FAERS Safety Report 5625053-4 (Version None)
Quarter: 2008Q1

REPORT INFORMATION
  Report Type: 
  Country: None (occurrence: None)
  Receive Date: 20080208
  Receipt Date: 20080125
  Transmission Date: 20080703
  Serious: Yes (Other)
  Sender: FDA-Public Use
  Company Number: 2008000177

PATIENT
  Age: 52 Year
  Sex: Female

DRUGS (1)
  1. TARCEVA [Suspect]
     Indication: NON-SMALL CELL LUNG CANCER METASTATIC
     Dosage: (150 MG,QD),ORAL
     Route: 048
     Dates: start: 20071210, end: 20080115

REACTIONS (5)
  - DRY SKIN [None]
  - HAEMOGLOBIN DECREASED [None]
  - NECROSIS [None]
  - PURPURA [None]
  - SKIN HYPERPIGMENTATION [None]
